FAERS Safety Report 10136825 (Version 1)
Quarter: 2014Q2

REPORT INFORMATION
  Report Type: Report from Study
  Country: CN (occurrence: CN)
  Receive Date: 20140429
  Receipt Date: 20140429
  Transmission Date: 20141212
  Serious: Yes (Other)
  Sender: FDA-Public Use
  Company Number: CN-ROCHE-1385042

PATIENT
  Sex: 0

DRUGS (4)
  1. BEVACIZUMAB [Suspect]
     Indication: CERVIX CANCER METASTATIC
     Route: 065
  2. PACLITAXEL [Concomitant]
  3. CARBOPLATIN [Concomitant]
  4. GEMCITABINE [Concomitant]

REACTIONS (20)
  - Leukopenia [Recovering/Resolving]
  - Gastrointestinal disorder [Recovering/Resolving]
  - Neutropenia [Recovering/Resolving]
  - Anaemia [Recovering/Resolving]
  - Infection [Recovering/Resolving]
  - Hypertension [Recovering/Resolving]
  - Embolism [Recovering/Resolving]
  - Thrombocytopenia [Recovering/Resolving]
  - Cardiovascular disorder [Recovering/Resolving]
  - Coagulopathy [Recovering/Resolving]
  - Cachexia [Recovering/Resolving]
  - Dermatologic examination abnormal [Recovering/Resolving]
  - Renal disorder [Recovering/Resolving]
  - Haemorrhage [Recovering/Resolving]
  - Nervous system disorder [Recovering/Resolving]
  - Pain [Recovering/Resolving]
  - Lung disorder [Recovering/Resolving]
  - Liver disorder [Recovering/Resolving]
  - Metabolic disorder [Recovering/Resolving]
  - Hypersensitivity [Recovering/Resolving]
